FAERS Safety Report 9143553 (Version 5)
Quarter: 2013Q3

REPORT INFORMATION
  Report Type: Report from Study
  Country: FR (occurrence: FR)
  Receive Date: 20130306
  Receipt Date: 20130903
  Transmission Date: 20140515
  Serious: Yes (Life-Threatening, Hospitalization)
  Sender: FDA-Public Use
  Company Number: FR-ROCHE-1196616

PATIENT
  Age: 65 Year
  Sex: Female

DRUGS (13)
  1. PERTUZUMAB [Suspect]
     Indication: HER-2 POSITIVE BREAST CANCER
     Dosage: LAST DOSE PRIOR TO SAE: 14/FEB/2013, PERMANENTLY DISCONTINUED
     Route: 042
     Dates: start: 20130214, end: 20130214
  2. TRASTUZUMAB [Suspect]
     Indication: HER-2 POSITIVE BREAST CANCER
     Dosage: LAST DOSE PRIOR TO SAE: 14/FEB/2013, PERMANENTLY DISCONTINUED
     Route: 042
     Dates: start: 20130214, end: 20130214
  3. DOCETAXEL [Suspect]
     Indication: HER-2 POSITIVE BREAST CANCER
     Dosage: LAST DOSE PRIOR TO SAE: 15/FEB/2013, PERMANENTLY DISCONTINUED
     Route: 042
     Dates: start: 20130215, end: 20130215
  4. METFORMIN [Concomitant]
     Route: 065
     Dates: end: 20130225
  5. COVERAM [Concomitant]
     Route: 065
     Dates: end: 20130222
  6. PRAVASTATINE [Concomitant]
  7. TRIFLUCAN [Concomitant]
     Route: 065
     Dates: start: 20130222
  8. OMEPRAZOLE [Concomitant]
     Route: 065
     Dates: start: 20130222, end: 20130225
  9. TIORFAN [Concomitant]
     Route: 065
     Dates: start: 20130222
  10. PRIMPERAN (FRANCE) [Concomitant]
     Route: 065
     Dates: start: 20130222, end: 20130227
  11. INSULIN [Concomitant]
     Route: 065
     Dates: start: 20130225
  12. SODIUM BICARBONATE [Concomitant]
     Route: 065
     Dates: start: 20130225
  13. SMECTA (FRANCE) [Concomitant]
     Route: 065
     Dates: start: 20130308

REACTIONS (1)
  - Renal failure acute [Recovered/Resolved]
